FAERS Safety Report 5314877-9 (Version None)
Quarter: 2007Q2

REPORT INFORMATION
  Report Type: 
  Country: None (occurrence: None)
  Receive Date: 20070502
  Receipt Date: 20070423
  Transmission Date: 20071010
  Serious: Yes (Death, Hospitalization)
  Sender: FDA-Public Use
  Company Number: DE-ROCHE-494605

PATIENT
  Sex: Female

DRUGS (1)
  1. CELLCEPT [Suspect]
     Route: 048

REACTIONS (4)
  - BONE DEVELOPMENT ABNORMAL [None]
  - DEATH [None]
  - HEPATIC NECROSIS [None]
  - HERPES VIRUS INFECTION [None]
